FAERS Safety Report 6472481-3 (Version None)
Quarter: 2009Q4

REPORT INFORMATION
  Report Type: 
  Country: None (occurrence: None)
  Receive Date: 20091130
  Receipt Date: 20091110
  Transmission Date: 20100525
  Serious: Yes (Death)
  Sender: FDA-Public Use
  Company Number: 8054585

PATIENT
  Age: 89 Year
  Sex: Male

DRUGS (6)
  1. KEPPRA [Suspect]
     Indication: PARTIAL SEIZURES
     Dosage: 500 MG /D PO
     Route: 048
     Dates: start: 20081001, end: 20091012
  2. SINTROM [Suspect]
     Indication: ATRIAL FLUTTER
     Dosage: PO
     Route: 048
     Dates: start: 20081001, end: 20091012
  3. DINTOINA [Suspect]
     Indication: PARTIAL SEIZURES
     Dosage: 100 MG 2/D PO
     Route: 048
     Dates: start: 20081001, end: 20091012
  4. ZOLOFT [Concomitant]
  5. MEDIPO [Concomitant]
  6. PRILENOR [Concomitant]

REACTIONS (2)
  - CEREBRAL HAEMORRHAGE [None]
  - INTERNATIONAL NORMALISED RATIO INCREASED [None]
